FAERS Safety Report 8024908-3 (Version None)
Quarter: 2012Q1

REPORT INFORMATION
  Report Type: 
  Country: None (occurrence: None)
  Receive Date: 20120105
  Receipt Date: 20111229
  Transmission Date: 20120608
  Serious: Yes (Other)
  Sender: FDA-Public Use
  Company Number: US-AMGEN-USASP2011069290

PATIENT
  Age: 67 Year
  Sex: Female

DRUGS (6)
  1. PROTONIX [Concomitant]
  2. AMICAR [Concomitant]
  3. ARTHROTEC [Concomitant]
  4. XANAX [Concomitant]
     Dosage: 1 MG, UNK
  5. PROLIA [Suspect]
     Indication: OSTEOPOROSIS POSTMENOPAUSAL
     Dates: start: 20110401
  6. CARDIZEM [Concomitant]

REACTIONS (8)
  - SURGERY [None]
  - MOBILITY DECREASED [None]
  - EXOSTOSIS [None]
  - BACK PAIN [None]
  - NERVE INJURY [None]
  - PAIN [None]
  - PAIN IN EXTREMITY [None]
  - NAUSEA [None]
